FAERS Safety Report 7522036-4 (Version None)
Quarter: 2011Q2

REPORT INFORMATION
  Report Type: 
  Country: None (occurrence: None)
  Receive Date: 20110603
  Receipt Date: 20110125
  Transmission Date: 20111010
  Serious: Yes (Other)
  Sender: FDA-Public Use
  Company Number: US-BAYER-201040787NA

PATIENT
  Age: 17 Year
  Sex: Female
  Weight: 58.957 kg

DRUGS (17)
  1. DROSPIRENONE AND ETHINYL ESTRADIOL [Suspect]
     Indication: PREMENSTRUAL SYNDROME
     Dates: start: 20081016, end: 20091112
  2. TRAMADOL HCL [Concomitant]
     Dosage: 50 MG, UNK
     Route: 048
     Dates: start: 20091117
  3. ACIPHEX [Concomitant]
  4. PANTOPRAZOLE [Concomitant]
     Dosage: 40 MG, UNK
     Route: 048
     Dates: start: 20090612
  5. YAZ [Suspect]
     Indication: PREMENSTRUAL SYNDROME
     Dates: start: 20080213, end: 20080722
  6. DROSPIRENONE AND ETHINYL ESTRADIOL [Suspect]
     Indication: MENORRHAGIA
  7. LEXAPRO [Concomitant]
     Dosage: 20 MG, UNK
     Route: 048
     Dates: start: 20090831
  8. FLUOXETINE HCL [Concomitant]
     Dosage: 10 MG, UNK
     Route: 048
     Dates: start: 20080708
  9. YAZ [Suspect]
     Indication: MENORRHAGIA
  10. METOCLOPRAMIDE [Concomitant]
     Dosage: 10 MG, UNK
     Route: 048
     Dates: start: 20090402
  11. NEXIUM [Concomitant]
  12. CEFPROZIL [Concomitant]
     Dosage: 500 MG, UNK
     Route: 048
     Dates: start: 20091112
  13. SIMETHICONE [Concomitant]
  14. YAZ [Suspect]
     Indication: DYSMENORRHOEA
  15. DROSPIRENONE AND ETHINYL ESTRADIOL [Suspect]
     Indication: DYSMENORRHOEA
  16. ACETAMINOPHEN AND HYDROCODONE BITARTRATE [Concomitant]
     Dosage: UNK
     Route: 048
     Dates: start: 20091117
  17. PROZAC [Concomitant]

REACTIONS (5)
  - CHOLELITHIASIS [None]
  - MENTAL DISORDER [None]
  - CHOLECYSTITIS CHRONIC [None]
  - GALLBLADDER DISORDER [None]
  - DEPRESSION [None]
